FAERS Safety Report 18208976 (Version 1)
Quarter: 2020Q3

REPORT INFORMATION
  Report Type: Spontaneous
  Country: JP (occurrence: JP)
  Receive Date: 20200828
  Receipt Date: 20200828
  Transmission Date: 20201103
  Serious: Yes (Other)
  Sender: FDA-Public Use
  Company Number: JP-PFIZER INC-2020330690

PATIENT
  Sex: Male

DRUGS (1)
  1. SELARA [Suspect]
     Active Substance: EPLERENONE
     Dosage: 25 MG, 2X/DAY
     Route: 048

REACTIONS (2)
  - Hyperaldosteronism [Not Recovered/Not Resolved]
  - Hyperhidrosis [Unknown]
